FAERS Safety Report 9503537 (Version 1)
Quarter: 2013Q1

REPORT INFORMATION
  Report Type: Spontaneous
  Country: US (occurrence: None)
  Receive Date: 20130226
  Receipt Date: 20130226
  Transmission Date: 20140127
  Serious: Yes (Hospitalization)
  Sender: FDA-Public Use
  Company Number: PHEH2012US020332

PATIENT
  Sex: 0

DRUGS (1)
  1. TOBI [Suspect]
     Indication: CYSTIC FIBROSIS
     Route: 055

REACTIONS (3)
  - Pulmonary function test decreased [None]
  - Asthma [None]
  - Cystic fibrosis lung [None]
